FAERS Safety Report 25019798 (Version 1)
Quarter: 2025Q1

REPORT INFORMATION
  Report Type: Spontaneous
  Country: US (occurrence: US)
  Receive Date: 20250227
  Receipt Date: 20250227
  Transmission Date: 20250408
  Serious: No
  Sender: UCB
  Company Number: US-UCBSA-2024029558

PATIENT
  Sex: Male

DRUGS (1)
  1. KEPPRA XR [Suspect]
     Active Substance: LEVETIRACETAM
     Indication: Seizure
     Dosage: 750 MILLIGRAM, ONCE DAILY (QD), /750MG - 1T IN AM

REACTIONS (4)
  - Depression [Not Recovered/Not Resolved]
  - Anxiety [Not Recovered/Not Resolved]
  - Panic attack [Not Recovered/Not Resolved]
  - Tremor [Unknown]
